FAERS Safety Report 4761586-0 (Version None)
Quarter: 2005Q3

REPORT INFORMATION
  Report Type: 
  Country: None (occurrence: None)
  Receive Date: 20050901
  Receipt Date: 20050901
  Transmission Date: 20060218
  Serious: Yes (Hospitalization)
  Sender: FDA-Public Use
  Company Number: None

PATIENT
  Sex: Female
  Weight: 55 kg

DRUGS (1)
  1. DEPAKOTE [Suspect]
     Indication: ACUTE MYELOID LEUKAEMIA
     Dosage: 60 MG/KG/DAY ORALLY
     Route: 048
     Dates: start: 20050802

REACTIONS (3)
  - BONE PAIN [None]
  - CATHETER SEPSIS [None]
  - FEBRILE NEUTROPENIA [None]
